FAERS Safety Report 4464249-4 (Version None)
Quarter: 2004Q4

REPORT INFORMATION
  Report Type: 
  Country: None (occurrence: None)
  Receive Date: 20041001
  Receipt Date: 20040923
  Transmission Date: 20050328
  Serious: Yes (Other)
  Sender: FDA-Public Use
  Company Number: US-JNJFOC-20040908727

PATIENT
  Age: 54 Year
  Sex: Female
  Weight: 90.27 kg

DRUGS (6)
  1. TOPAMAX [Suspect]
     Indication: MIGRAINE PROPHYLAXIS
     Route: 049
  2. TOPAMAX [Suspect]
     Route: 049
  3. FLEXERIL [Concomitant]
     Route: 049
  4. COZAAR [Concomitant]
     Route: 049
  5. PHENERGAN SUPPOSITORY [Concomitant]
     Route: 054
  6. PROPRANOLOL [Concomitant]
     Route: 049

REACTIONS (2)
  - DIALYSIS [None]
  - RENAL FAILURE [None]
